FAERS Safety Report 7589940-2 (Version None)
Quarter: 2011Q3

REPORT INFORMATION
  Report Type: 
  Country: None (occurrence: None)
  Receive Date: 20110705
  Receipt Date: 20110614
  Transmission Date: 20111222
  Serious: Yes (Hospitalization)
  Sender: FDA-Public Use
  Company Number: A0764348A

PATIENT
  Age: 63 Year
  Sex: Female
  Weight: 135.5 kg

DRUGS (8)
  1. LIPITOR [Concomitant]
  2. INSULIN [Concomitant]
  3. PRAZOSIN HCL [Concomitant]
  4. KAY CIEL DURA-TABS [Concomitant]
  5. AVANDIA [Suspect]
     Dosage: 8MG PER DAY
     Route: 048
     Dates: start: 19990101, end: 20080101
  6. TARKA [Concomitant]
  7. DYAZIDE [Concomitant]
  8. SYNTHROID [Concomitant]

REACTIONS (4)
  - PAIN [None]
  - ATRIOVENTRICULAR BLOCK [None]
  - CARDIAC FAILURE CONGESTIVE [None]
  - CORONARY ARTERY DISEASE [None]
